FAERS Safety Report 7795010 (Version 5)
Quarter: 2012Q4

REPORT INFORMATION
  Report Type: 
  Country: US (occurrence: US)
  Receive Date: 20110201
  Receipt Date: 20121221
  Transmission Date: 20130627
  Serious: No
  Sender: FDA-Public Use
  Company Number: US-ASTRAZENECA-2011SE04118

PATIENT
  Age: 48 Year
  Sex: Female

DRUGS (2)
  1. NEXIUM [Suspect]
     Route: 048
  2. MOTRIN [Concomitant]

REACTIONS (10)
  - Ulcer [Unknown]
  - Gastroenteritis viral [Unknown]
  - Muscle spasms [Unknown]
  - Pain [Unknown]
  - Panic reaction [Unknown]
  - Asthma [Unknown]
  - Mental disorder [Unknown]
  - Malaise [Unknown]
  - Off label use [Unknown]
  - Drug dose omission [Unknown]
